FAERS Safety Report 9092499 (Version 1)
Quarter: 2013Q1

REPORT INFORMATION
  Report Type: Spontaneous
  Country: US (occurrence: None)
  Receive Date: 20130213
  Receipt Date: 20130213
  Transmission Date: 20140127
  Serious: Yes (Other)
  Sender: FDA-Public Use
  Company Number: None

PATIENT
  Age: 42 Year
  Sex: Female
  Weight: 51.71 kg

DRUGS (1)
  1. ACCUTANE [Suspect]
     Indication: CROHN^S DISEASE
     Dates: start: 20000601, end: 20001101

REACTIONS (5)
  - Crohn^s disease [None]
  - Intestinal perforation [None]
  - No therapeutic response [None]
  - Impaired work ability [None]
  - Asthenia [None]
